FAERS Safety Report 21811092 (Version 8)
Quarter: 2025Q4

REPORT INFORMATION
  Report Type: Report from Study
  Country: JP (occurrence: JP)
  Receive Date: 20230103
  Receipt Date: 20251123
  Transmission Date: 20260118
  Serious: Yes (Hospitalization, Disabling, Other)
  Sender: ABBVIE
  Company Number: JP-TAKEDA-2022TJP079693

PATIENT
  Age: 41 Year
  Sex: Male
  Weight: 75 kg

DRUGS (22)
  1. LEUPROLIDE ACETATE [Suspect]
     Active Substance: LEUPROLIDE ACETATE
     Indication: Bulbospinal muscular atrophy congenital
     Dosage: 11.25 MILLIGRAM
     Route: 058
     Dates: start: 20211218
  2. LEUPROLIDE ACETATE [Suspect]
     Active Substance: LEUPROLIDE ACETATE
     Dosage: SECOND DOSE
     Route: 058
     Dates: start: 20220312, end: 20220312
  3. LEUPROLIDE ACETATE [Suspect]
     Active Substance: LEUPROLIDE ACETATE
     Dosage: THIRD DOSE
     Route: 058
     Dates: start: 20220604, end: 20220604
  4. LEUPROLIDE ACETATE [Suspect]
     Active Substance: LEUPROLIDE ACETATE
     Dosage: FOURTH DOSE
     Route: 058
     Dates: start: 20220813, end: 20220813
  5. LEUPROLIDE ACETATE [Suspect]
     Active Substance: LEUPROLIDE ACETATE
     Dosage: FIFTH DOSE
     Route: 058
     Dates: start: 20221119, end: 20221119
  6. LEUPROLIDE ACETATE [Suspect]
     Active Substance: LEUPROLIDE ACETATE
     Dosage: SIXTH DOSE
     Route: 058
     Dates: start: 20230308, end: 20230308
  7. LEUPROLIDE ACETATE [Suspect]
     Active Substance: LEUPROLIDE ACETATE
     Dosage: SEVENTH  DOSE
     Route: 058
     Dates: start: 20230617, end: 20230617
  8. LEUPROLIDE ACETATE [Suspect]
     Active Substance: LEUPROLIDE ACETATE
     Dosage: NINTH DOSE
     Route: 058
     Dates: start: 20231226, end: 20231226
  9. LEUPROLIDE ACETATE [Suspect]
     Active Substance: LEUPROLIDE ACETATE
     Dosage: TENTH DOSE
     Route: 058
     Dates: start: 20240424, end: 20240424
  10. LEUPROLIDE ACETATE [Suspect]
     Active Substance: LEUPROLIDE ACETATE
     Dosage: NINTH DOSE
     Route: 058
     Dates: start: 20231226, end: 20231226
  11. LEUPROLIDE ACETATE [Suspect]
     Active Substance: LEUPROLIDE ACETATE
     Dosage: 11TH DOSE
     Route: 058
     Dates: start: 20240710, end: 20240710
  12. LEUPROLIDE ACETATE [Suspect]
     Active Substance: LEUPROLIDE ACETATE
     Dosage: 13TH DOSE
     Route: 058
     Dates: start: 20250205, end: 20250205
  13. LEUPROLIDE ACETATE [Suspect]
     Active Substance: LEUPROLIDE ACETATE
     Dosage: 14TH DOSE
     Route: 058
     Dates: start: 20250425, end: 20250425
  14. LEUPROLIDE ACETATE [Suspect]
     Active Substance: LEUPROLIDE ACETATE
     Dosage: 15TH DOSE
     Route: 058
     Dates: start: 20250716, end: 20250716
  15. LEUPROLIDE ACETATE [Suspect]
     Active Substance: LEUPROLIDE ACETATE
     Dosage: 16TH DOSE
     Route: 058
  16. LEUPROLIDE ACETATE [Suspect]
     Active Substance: LEUPROLIDE ACETATE
     Dosage: 15TH DOSE
     Route: 058
     Dates: start: 20250716, end: 20250716
  17. SHAKUYAKUKANZOTO [Concomitant]
     Active Substance: HERBALS
     Indication: Bulbospinal muscular atrophy congenital
     Dosage: 2 DOSAGE FORM
     Route: 065
     Dates: start: 20211218, end: 20220603
  18. AMOXICILLIN TRIHYDRATE [Concomitant]
     Active Substance: AMOXICILLIN
     Indication: Tonsillitis
     Dosage: 750 MILLIGRAM
     Route: 048
     Dates: start: 20250729, end: 20250807
  19. REBAMIPIDE [Concomitant]
     Active Substance: REBAMIPIDE
     Indication: Bulbospinal muscular atrophy congenital
     Dosage: 100 MILLIGRAM
     Route: 048
     Dates: start: 20231226
  20. TRAMCET [Concomitant]
     Active Substance: ACETAMINOPHEN\TRAMADOL
     Indication: Fibula fracture
     Dosage: 6 DOSAGE FORM
     Route: 048
     Dates: start: 20250421, end: 20250513
  21. LOXOPROFEN SODIUM [Concomitant]
     Active Substance: LOXOPROFEN SODIUM
     Indication: Bulbospinal muscular atrophy congenital
     Dosage: 60 MILLIGRAM
     Route: 048
     Dates: start: 20231226
  22. AUGMENTIN [Concomitant]
     Active Substance: AMOXICILLIN\CLAVULANATE POTASSIUM
     Indication: Tonsillitis
     Dosage: 750 MILLIGRAM
     Route: 048
     Dates: start: 20250729, end: 20250807

REACTIONS (10)
  - Ankle fracture [Recovered/Resolved with Sequelae]
  - Nasopharyngitis [Recovered/Resolved]
  - COVID-19 [Recovered/Resolved]
  - Foot fracture [Recovered/Resolved]
  - Osteoporosis [Recovering/Resolving]
  - Fall [Recovered/Resolved]
  - Back pain [Recovering/Resolving]
  - Fibula fracture [Recovered/Resolved]
  - Rhinitis [Recovering/Resolving]
  - Tonsillitis [Recovered/Resolved]

NARRATIVE: CASE EVENT DATE: 20220813
